FAERS Safety Report 25568827 (Version 1)
Quarter: 2025Q3

REPORT INFORMATION
  Report Type: Spontaneous
  Country: US (occurrence: US)
  Receive Date: 20250716
  Receipt Date: 20250716
  Transmission Date: 20251020
  Serious: No
  Sender: NOVO NORDISK
  Company Number: US-NOVOPROD-1344951

PATIENT
  Age: 77 Year
  Sex: Female

DRUGS (4)
  1. OZEMPIC [Suspect]
     Active Substance: SEMAGLUTIDE
     Indication: Type 2 diabetes mellitus
     Route: 058
     Dates: start: 2022
  2. OZEMPIC [Suspect]
     Active Substance: SEMAGLUTIDE
     Indication: Weight control
  3. CEQUA [Concomitant]
     Active Substance: CYCLOSPORINE
     Indication: Glaucoma
     Dates: start: 20240904, end: 20240906
  4. CEQUA [Concomitant]
     Active Substance: CYCLOSPORINE
     Indication: Dry eye

REACTIONS (4)
  - Eye irritation [Unknown]
  - Eye pruritus [Unknown]
  - Nausea [Unknown]
  - Vomiting [Unknown]

NARRATIVE: CASE EVENT DATE: 20240901
